FAERS Safety Report 7005651-6 (Version None)
Quarter: 2010Q3

REPORT INFORMATION
  Report Type: 
  Country: None (occurrence: None)
  Receive Date: 20100921
  Receipt Date: 20100914
  Transmission Date: 20110219
  Serious: Yes (Death, Hospitalization, Other)
  Sender: FDA-Public Use
  Company Number: B0631689A

PATIENT
  Sex: Female

DRUGS (6)
  1. ZEFIX [Suspect]
     Indication: ANTIVIRAL PROPHYLAXIS
     Dosage: 100MG PER DAY
     Route: 048
     Dates: start: 20020101, end: 20091201
  2. RITUXAN [Concomitant]
     Dosage: 600MG IN THE MORNING
     Route: 065
     Dates: start: 20020901, end: 20090901
  3. CYCLOPHOSPHAMIDE [Concomitant]
     Route: 065
  4. DOXORUBICIN HYDROCHLORIDE [Concomitant]
     Route: 065
  5. ONCOVIN [Concomitant]
     Route: 065
  6. PREDNISOLONE [Concomitant]
     Route: 065

REACTIONS (11)
  - DRUG INEFFECTIVE [None]
  - DRUG RESISTANCE [None]
  - HEPATIC ATROPHY [None]
  - HEPATIC ENCEPHALOPATHY [None]
  - HEPATIC ENZYME INCREASED [None]
  - HEPATIC FAILURE [None]
  - HEPATITIS B [None]
  - HEPATITIS FULMINANT [None]
  - JAUNDICE [None]
  - MALAISE [None]
  - VIRAL HEPATITIS CARRIER [None]
